FAERS Safety Report 6851879-5 (Version None)
Quarter: 2010Q3

REPORT INFORMATION
  Report Type: 
  Country: None (occurrence: None)
  Receive Date: 20100717
  Receipt Date: 20071030
  Transmission Date: 20110219
  Serious: No
  Sender: FDA-Public Use
  Company Number: US-PFIZER INC-2007092865

PATIENT
  Sex: Male
  Weight: 95.3 kg

DRUGS (2)
  1. CHANTIX [Suspect]
     Dates: start: 20070101, end: 20071001
  2. OTHER HYPNOTICS AND SEDATIVES [Concomitant]

REACTIONS (4)
  - DIZZINESS [None]
  - HEADACHE [None]
  - NAUSEA [None]
  - PRESYNCOPE [None]
